FAERS Safety Report 4264144-X (Version None)
Quarter: 2004Q1

REPORT INFORMATION
  Report Type: 
  Country: None (occurrence: None)
  Receive Date: 20040102
  Receipt Date: 20031217
  Transmission Date: 20041129
  Serious: Yes (Life-Threatening, Hospitalization, Other)
  Sender: FDA-Public Use
  Company Number: JP_031102242

PATIENT
  Age: 59 Year
  Sex: Male

DRUGS (11)
  1. GEMZAR [Suspect]
     Indication: PANCREATIC CARCINOMA
     Dosage: 1400 MG/OTHER
     Route: 042
     Dates: start: 20030903, end: 20031114
  2. MS CONTIN [Concomitant]
  3. TENORMIN [Concomitant]
  4. NORVASC [Concomitant]
  5. ENALAPRIL MALEATE [Concomitant]
  6. DOXAZOSIN MESYLATE [Concomitant]
  7. BEHYD (BENZYLHYDROCHLORTHIAZIDE) [Concomitant]
  8. WARFARIN SODIUM [Concomitant]
  9. LOXONIN (LOXOPROFEN SODIUM) [Concomitant]
  10. FAMOTIDINE [Concomitant]
  11. DEXAMETHASONE SODIUM PHOSPHATE [Concomitant]

REACTIONS (11)
  - ACUTE RESPIRATORY FAILURE [None]
  - ANAEMIA [None]
  - BONE MARROW DEPRESSION [None]
  - C-REACTIVE PROTEIN INCREASED [None]
  - CYTOMEGALOVIRUS ANTIGEN POSITIVE [None]
  - OEDEMA PERIPHERAL [None]
  - OPPORTUNISTIC INFECTION [None]
  - PNEUMOCYSTIS CARINII PNEUMONIA [None]
  - PRINZMETAL ANGINA [None]
  - PULMONARY CONGESTION [None]
  - SYNCOPE [None]
